FAERS Safety Report 23229235 (Version 2)
Quarter: 2023Q4

REPORT INFORMATION
  Report Type: Other
  Country: IT (occurrence: IT)
  Receive Date: 20231127
  Receipt Date: 20231218
  Transmission Date: 20240109
  Serious: Yes (Other)
  Sender: FDA-Public Use
  Company Number: IT-002147023-NVSC2023IT245316

PATIENT
  Age: 32 Year
  Sex: Female

DRUGS (1)
  1. OMALIZUMAB [Suspect]
     Active Substance: OMALIZUMAB
     Indication: Urticaria chronic
     Dosage: AT MONTHLY DOSE OF 300 MG
     Route: 065
     Dates: start: 202211

REACTIONS (1)
  - Tuberculosis [Unknown]
